FAERS Safety Report 7832189-6 (Version None)
Quarter: 2011Q4

REPORT INFORMATION
  Report Type: 
  Country: None (occurrence: None)
  Receive Date: 20111022
  Receipt Date: 20111019
  Transmission Date: 20120403
  Serious: Yes (Hospitalization)
  Sender: FDA-Public Use
  Company Number: IT-BAYER-2011-101606

PATIENT
  Age: 74 Year
  Sex: Male

DRUGS (5)
  1. ASPIRIN [Concomitant]
     Route: 048
  2. NEXAVAR [Suspect]
     Indication: RENAL NEOPLASM
     Dosage: DAILY DOSE 800 MG
     Route: 048
     Dates: start: 20110314, end: 20110323
  3. LANSOPRAZOLE [Concomitant]
     Dosage: DAILY DOSE 30 MG
     Route: 048
  4. HALCION [Concomitant]
  5. VALSARTAN  AND HYDROCHLOROTHIAZIDE [Concomitant]
     Dosage: DAILY DOSE 160 MG
     Route: 048

REACTIONS (5)
  - RENAL FAILURE ACUTE [None]
  - HYPERURICAEMIA [None]
  - BLOOD CREATINE PHOSPHOKINASE INCREASED [None]
  - MYOGLOBINURIA [None]
  - MYOGLOBIN BLOOD INCREASED [None]
